FAERS Safety Report 9778534 (Version 3)
Quarter: 2014Q3

REPORT INFORMATION
  Report Type: Spontaneous
  Country: US (occurrence: US)
  Receive Date: 20131223
  Receipt Date: 20140814
  Transmission Date: 20150326
  Serious: Yes (Other)
  Sender: FDA-Public Use
  Company Number: US-BAYER-2013-155040

PATIENT
  Age: 48 Year
  Sex: Female
  Weight: 93.42 kg

DRUGS (2)
  1. MIRENA [Suspect]
     Active Substance: LEVONORGESTREL
     Indication: CONTRACEPTION
     Dosage: 20 MCG/24HR, CONT
     Route: 015
     Dates: start: 20100405
  2. MIRENA [Suspect]
     Active Substance: LEVONORGESTREL
     Indication: MENORRHAGIA

REACTIONS (15)
  - Menorrhagia [None]
  - Anhedonia [None]
  - Device dislocation [None]
  - Device difficult to use [None]
  - Weight increased [None]
  - Dyspareunia [None]
  - Fear of pregnancy [None]
  - Device dislocation [None]
  - Abdominal pain lower [None]
  - Hypoaesthesia [None]
  - Abdominal pain [None]
  - Stress [None]
  - Genital haemorrhage [None]
  - Pelvic pain [None]
  - Pain in extremity [None]

NARRATIVE: CASE EVENT DATE: 2010
